FAERS Safety Report 17571062 (Version 1)
Quarter: 2020Q1

REPORT INFORMATION
  Report Type: Spontaneous
  Country: US (occurrence: US)
  Receive Date: 20200323
  Receipt Date: 20200323
  Transmission Date: 20200409
  Serious: No
  Sender: FDA-Public Use
  Company Number: US-AUROBINDO-AUR-APL-2019-013331

PATIENT
  Sex: Female

DRUGS (1)
  1. GABAPENTIN. [Suspect]
     Active Substance: GABAPENTIN
     Indication: DISABILITY
     Dosage: 300 MILLIGRAM, 3 TIMES A DAY
     Route: 065

REACTIONS (2)
  - Dysphagia [Unknown]
  - Product use complaint [Unknown]
